FAERS Safety Report 12605967 (Version 5)
Quarter: 2016Q3

REPORT INFORMATION
  Report Type: Report from Study
  Country: AU (occurrence: AU)
  Receive Date: 20160729
  Receipt Date: 20160831
  Transmission Date: 20161109
  Serious: Yes (Hospitalization)
  Sender: FDA-Public Use
  Company Number: AU-ROCHE-1805095

PATIENT
  Age: 64 Year
  Sex: Male

DRUGS (2)
  1. ACTEMRA [Suspect]
     Active Substance: TOCILIZUMAB
     Indication: RHEUMATOID ARTHRITIS
     Route: 042
     Dates: start: 20151009, end: 20160826
  2. ACTEMRA [Suspect]
     Active Substance: TOCILIZUMAB
     Route: 042
     Dates: start: 20160808

REACTIONS (3)
  - Vasculitis [Recovered/Resolved]
  - Intestinal obstruction [Recovered/Resolved]
  - Vasculitis [Recovering/Resolving]

NARRATIVE: CASE EVENT DATE: 20160801
